FAERS Safety Report 4992606-6 (Version None)
Quarter: 2006Q1

REPORT INFORMATION
  Report Type: 
  Country: None (occurrence: None)
  Receive Date: 20060314
  Receipt Date: 20051215
  Transmission Date: 20060701
  Serious: No
  Sender: FDA-Public Use
  Company Number: 2005-02585

PATIENT
  Age: 51 Year
  Sex: Female
  Weight: 86.1 kg

DRUGS (7)
  1. VELCADE (BORTEZPMIB) INJECTION [Suspect]
     Indication: MULTIPLE MYELOMA
     Dosage: 1.30 MG/M2, INTRAVENOUS
     Route: 042
     Dates: start: 20051001
  2. SYNTHROID [Concomitant]
  3. CALCIUM (CALCIUM) [Concomitant]
  4. VITAMINS [Concomitant]
  5. PENICILLIN [Concomitant]
  6. ACYCLOVIR [Concomitant]
  7. DARVOCET-N (PARACETAMOL, DEXTROPROPOXYPHENE NAPSILATE) [Concomitant]

REACTIONS (1)
  - THROMBOCYTOPENIA [None]
